FAERS Safety Report 19510936 (Version 1)
Quarter: 2021Q3

REPORT INFORMATION
  Report Type: Spontaneous
  Country: US (occurrence: US)
  Receive Date: 20210709
  Receipt Date: 20210709
  Transmission Date: 20211014
  Serious: Yes (Hospitalization)
  Sender: FDA-Public Use
  Company Number: None

PATIENT
  Age: 64 Year
  Sex: Male
  Weight: 89.2 kg

DRUGS (1)
  1. CISPLATIN. [Suspect]
     Active Substance: CISPLATIN
     Dates: end: 20210602

REACTIONS (15)
  - Dysphagia [None]
  - Vomiting [None]
  - Nausea [None]
  - Adult failure to thrive [None]
  - Pneumonia aspiration [None]
  - Pulmonary mass [None]
  - Malaise [None]
  - Hypotension [None]
  - Dehydration [None]
  - Chills [None]
  - Pleural effusion [None]
  - Fatigue [None]
  - Pancytopenia [None]
  - Asthenia [None]
  - Atelectasis [None]

NARRATIVE: CASE EVENT DATE: 20210607
